FAERS Safety Report 11101202 (Version 2)
Quarter: 2015Q2

REPORT INFORMATION
  Report Type: Spontaneous
  Country: US (occurrence: US)
  Receive Date: 20150508
  Receipt Date: 20150513
  Transmission Date: 20150821
  Serious: No
  Sender: FDA-Public Use
  Company Number: US-PFIZER INC-2015154194

PATIENT
  Age: 85 Year
  Sex: Female

DRUGS (1)
  1. IBRANCE [Suspect]
     Active Substance: PALBOCICLIB
     Indication: BREAST CANCER
     Dosage: 125 MG, DAILY
     Dates: start: 20150424, end: 20150505

REACTIONS (6)
  - Fatigue [Unknown]
  - Skin exfoliation [Unknown]
  - Rash [Unknown]
  - Cough [Unknown]
  - Dizziness [Unknown]
  - Lip exfoliation [Unknown]
